FAERS Safety Report 24243627 (Version 1)
Quarter: 2024Q3

REPORT INFORMATION
  Report Type: Spontaneous
  Country: DE (occurrence: DE)
  Receive Date: 20240823
  Receipt Date: 20240823
  Transmission Date: 20241016
  Serious: Yes (Other)
  Sender: TEVA
  Company Number: DE-SANDOZ-SDZ2024DE069671

PATIENT
  Sex: Female

DRUGS (4)
  1. BACLOFEN [Suspect]
     Active Substance: BACLOFEN
     Indication: Product used for unknown indication
     Dosage: 25 MG, PZN: 06707261, BEEN TAKING FOR SOME TIME
     Route: 065
  2. TIZANIDINE [Suspect]
     Active Substance: TIZANIDINE
     Indication: Multiple sclerosis
     Dosage: 6 MG,PZN: 03023450
     Route: 065
     Dates: start: 20240718
  3. TIZANIDINE [Suspect]
     Active Substance: TIZANIDINE
     Indication: Multiple sclerosis
     Dosage: 12 MG,6 TABLETS (2 IN THE MORNING, 1 AT NOON, 2 IN THE EVENING, 1 AT NIGHT)
     Route: 065
     Dates: start: 20240725
  4. TIZANIDINE [Suspect]
     Active Substance: TIZANIDINE
     Indication: Multiple sclerosis
     Dosage: 6 MG (3 TABLETS A DAY)
     Route: 065
     Dates: start: 202407

REACTIONS (1)
  - Multiple sclerosis [Not Recovered/Not Resolved]

NARRATIVE: CASE EVENT DATE: 20240725
